FAERS Safety Report 13730236 (Version 2)
Quarter: 2017Q3

REPORT INFORMATION
  Report Type: Spontaneous
  Country: US (occurrence: US)
  Receive Date: 20170707
  Receipt Date: 20170922
  Transmission Date: 20171127
  Serious: Yes (Death, Hospitalization)
  Sender: FDA-Public Use
  Company Number: US-JNJFOC-20170526522

PATIENT
  Age: 85 Year
  Sex: Male

DRUGS (3)
  1. XARELTO [Suspect]
     Active Substance: RIVAROXABAN
     Indication: ATRIAL FIBRILLATION
     Dosage: FIRST ON 20MG ONCE DAILY THENSWITCHED TO 15MG ONCE DAILY
     Route: 048
     Dates: start: 20130514, end: 20150512
  2. XARELTO [Suspect]
     Active Substance: RIVAROXABAN
     Indication: THROMBOSIS PROPHYLAXIS
     Dosage: FIRST ON 20MG ONCE DAILY THENSWITCHED TO 15MG ONCE DAILY
     Route: 048
     Dates: start: 20130514, end: 20150512
  3. XARELTO [Suspect]
     Active Substance: RIVAROXABAN
     Indication: CEREBROVASCULAR ACCIDENT PROPHYLAXIS
     Dosage: FIRST ON 20MG ONCE DAILY THENSWITCHED TO 15MG ONCE DAILY
     Route: 048
     Dates: start: 20130514, end: 20150512

REACTIONS (1)
  - Epistaxis [Unknown]

NARRATIVE: CASE EVENT DATE: 201504
